FAERS Safety Report 7601564-7 (Version None)
Quarter: 2011Q3

REPORT INFORMATION
  Report Type: 
  Country: None (occurrence: None)
  Receive Date: 20110711
  Receipt Date: 20110629
  Transmission Date: 20111222
  Serious: Yes (Hospitalization)
  Sender: FDA-Public Use
  Company Number: PHHO2011IT11151

PATIENT
  Sex: Male
  Weight: 78 kg

DRUGS (5)
  1. NEORAL [Suspect]
     Indication: HEART TRANSPLANT
     Dosage: 200 MG
     Route: 048
     Dates: start: 20110418
  2. BACTRIM [Concomitant]
     Indication: ANTIFUNGAL PROPHYLAXIS
  3. VALCYTE [Concomitant]
     Indication: ANTIVIRAL PROPHYLAXIS
     Dosage: 900 MG
     Dates: start: 20110601
  4. LESCOL [Suspect]
     Dosage: 40 MG, UNK
     Route: 048
     Dates: start: 20110518
  5. EVEROLIMUS [Suspect]
     Indication: HEART TRANSPLANT
     Dosage: 1.50 MG
     Route: 048
     Dates: start: 20110518

REACTIONS (1)
  - ESCHERICHIA INFECTION [None]
